FAERS Safety Report 5198110-7 (Version None)
Quarter: 2007Q1

REPORT INFORMATION
  Report Type: 
  Country: None (occurrence: None)
  Receive Date: 20070104
  Receipt Date: 20061222
  Transmission Date: 20070707
  Serious: Yes (Other)
  Sender: FDA-Public Use
  Company Number: PHEH2006US15170

PATIENT
  Age: 36 Year
  Sex: Male

DRUGS (4)
  1. ZELNORM [Suspect]
     Indication: CONSTIPATION
     Dosage: 3 MG, BID
     Route: 048
     Dates: start: 20060912
  2. NITROGLYCERIN [Suspect]
     Indication: CHEST PAIN
     Dosage: 0.4 MG, PRN
     Dates: end: 20061201
  3. NEXIUM [Concomitant]
     Dosage: 40 MG, UNK
  4. SYMAX [Concomitant]
     Dosage: 0.125 MG, PRN

REACTIONS (6)
  - COLITIS ISCHAEMIC [None]
  - COLON ADENOMA [None]
  - ISCHAEMIC ULCER [None]
  - LARGE INTESTINAL ULCER [None]
  - POLYP [None]
  - POLYPECTOMY [None]
